FAERS Safety Report 23249888 (Version 1)
Quarter: 2023Q4

REPORT INFORMATION
  Report Type: Spontaneous
  Country: US (occurrence: US)
  Receive Date: 20231201
  Receipt Date: 20231201
  Transmission Date: 20240110
  Serious: Yes (Other)
  Sender: FDA-Public Use
  Company Number: US-APOTEX-2023AP017170

PATIENT
  Age: 78 Year
  Sex: Female

DRUGS (1)
  1. GEMCITABINE [Suspect]
     Active Substance: GEMCITABINE
     Indication: Ovarian epithelial cancer
     Dosage: UNK
     Route: 065

REACTIONS (2)
  - Intercapillary glomerulosclerosis [Recovering/Resolving]
  - Thrombotic microangiopathy [Recovering/Resolving]
